FAERS Safety Report 22255068 (Version 3)
Quarter: 2024Q1

REPORT INFORMATION
  Report Type: Report from Study
  Country: HU (occurrence: HU)
  Receive Date: 20230426
  Receipt Date: 20240122
  Transmission Date: 20240409
  Serious: Yes (Hospitalization, Other)
  Sender: FDA-Public Use
  Company Number: HU-BAXTER-2012BH002952

PATIENT
  Age: 1 Year
  Sex: Male
  Weight: 12 kg

DRUGS (15)
  1. ADVATE [Suspect]
     Active Substance: ANTIHEMOPHILIC FACTOR, HUMAN RECOMBINANT
     Indication: Factor VIII deficiency
     Dosage: UNK
     Route: 042
     Dates: start: 20111005
  2. ADVATE [Suspect]
     Active Substance: ANTIHEMOPHILIC FACTOR, HUMAN RECOMBINANT
     Indication: Factor VIII deficiency
     Dosage: UNK
     Route: 042
     Dates: start: 20111005
  3. ADVATE [Suspect]
     Active Substance: ANTIHEMOPHILIC FACTOR, HUMAN RECOMBINANT
     Indication: Factor VIII deficiency
     Dosage: UNK
     Route: 042
     Dates: start: 20111005
  4. AMOXICILLIN\CLAVULANATE POTASSIUM [Concomitant]
     Active Substance: AMOXICILLIN\CLAVULANATE POTASSIUM
     Indication: Otitis media
     Dosage: 3 MILLILITER, BID
     Route: 048
     Dates: start: 20120116, end: 20120120
  5. AMOXICILLIN\CLAVULANATE POTASSIUM [Concomitant]
     Active Substance: AMOXICILLIN\CLAVULANATE POTASSIUM
     Dosage: 5 MILLILITER, BID
     Route: 048
     Dates: start: 20120121, end: 20120123
  6. PANADOL [Concomitant]
     Active Substance: ACETAMINOPHEN
     Indication: Pyrexia
     Dosage: 6.5 MILLILITER
     Route: 048
     Dates: start: 20111008, end: 20111008
  7. PANADOL [Concomitant]
     Active Substance: ACETAMINOPHEN
     Dosage: 7 MILLILITER
     Route: 048
     Dates: start: 20120120, end: 20120124
  8. PANADOL [Concomitant]
     Active Substance: ACETAMINOPHEN
     Dosage: 7 MILLILITER
     Route: 048
     Dates: start: 20120910, end: 20120910
  9. NORAMINOPHENAZONUM [Concomitant]
     Indication: Pyrexia
     Dosage: 0.2 GRAM
     Route: 054
     Dates: start: 20120120, end: 20120121
  10. DICLOFENAC [Concomitant]
     Active Substance: DICLOFENAC
     Indication: Pyrexia
     Dosage: 11 GTT DROPS
     Route: 048
     Dates: start: 20120120, end: 20120123
  11. AMBROXOL [Concomitant]
     Active Substance: AMBROXOL
     Indication: Ear pain
     Dosage: 5 MILLILITER, BID
     Route: 048
     Dates: start: 20150312, end: 20150318
  12. LACTOBACILLUS ACIDOPHILUS [Concomitant]
     Active Substance: LACTOBACILLUS ACIDOPHILUS
     Indication: Probiotic therapy
     Dosage: 1 DOSAGE FORM, QD
     Route: 065
     Dates: start: 20150312, end: 20150319
  13. AMOXICILLIN\CLAVULANIC ACID [Concomitant]
     Active Substance: AMOXICILLIN\CLAVULANIC ACID
     Indication: Ear pain
     Dosage: 5 MILLILITER, BID
     Route: 065
     Dates: start: 20150312, end: 20150318
  14. ACETAMINOPHEN [Concomitant]
     Active Substance: ACETAMINOPHEN
     Indication: Pyrexia
     Dosage: 7 MILLILITER, BID
     Route: 065
     Dates: start: 20120910, end: 20120910
  15. FERROUS SULFATE\SERINE [Concomitant]
     Active Substance: FERROUS SULFATE\SERINE
     Indication: Anaemia
     Dosage: 5 MILLILITER, QD
     Route: 065
     Dates: start: 20140124, end: 20140819

REACTIONS (3)
  - Head injury [Recovered/Resolved]
  - Hordeolum [Recovered/Resolved]
  - Blepharitis [Recovered/Resolved]

NARRATIVE: CASE EVENT DATE: 20120118
